FAERS Safety Report 17057275 (Version 1)
Quarter: 2019Q4

REPORT INFORMATION
  Report Type: Spontaneous
  Country: IT (occurrence: IT)
  Receive Date: 20191121
  Receipt Date: 20191121
  Transmission Date: 20200122
  Serious: Yes (Other)
  Sender: FDA-Public Use
  Company Number: IT-ACCORD-161098

PATIENT
  Age: 72 Year
  Sex: Male

DRUGS (7)
  1. OXALIPLATIN. [Suspect]
     Active Substance: OXALIPLATIN
     Indication: RECTAL CANCER METASTATIC
     Dosage: MEDIAN RECEIVED DOSE-INTENSITY WAS 100% FOR ALL ASSOCIATED DRUGS
  2. FLUOROURACIL. [Suspect]
     Active Substance: FLUOROURACIL
     Indication: NEUROENDOCRINE TUMOUR
     Dosage: MEDIAN RECEIVED DOSE-INTENSITY WAS 100% FOR ALL ASSOCIATED DRUGS
  3. FLUOROURACIL. [Suspect]
     Active Substance: FLUOROURACIL
     Indication: RECTAL CANCER METASTATIC
     Dosage: MEDIAN RECEIVED DOSE-INTENSITY WAS 100% FOR ALL ASSOCIATED DRUGS
  4. BEVACIZUMAB. [Suspect]
     Active Substance: BEVACIZUMAB
     Indication: RECTAL CANCER METASTATIC
     Dosage: MEDIAN RECEIVED DOSE-INTENSITY WAS 100% FOR ALL ASSOCIATED DRUGS
  5. BEVACIZUMAB. [Suspect]
     Active Substance: BEVACIZUMAB
     Indication: METASTASES TO SKIN
     Dosage: MEDIAN RECEIVED DOSE-INTENSITY WAS 100% FOR ALL ASSOCIATED DRUGS
  6. IRINOTECAN [Suspect]
     Active Substance: IRINOTECAN
     Indication: METASTASES TO SKIN
  7. OXALIPLATIN. [Suspect]
     Active Substance: OXALIPLATIN
     Indication: NEUROENDOCRINE TUMOUR
     Dosage: MEDIAN RECEIVED DOSE-INTENSITY WAS 100% FOR ALL ASSOCIATED DRUGS

REACTIONS (8)
  - Alopecia [Unknown]
  - Nausea [Unknown]
  - Neutropenia [Unknown]
  - Toxicity to various agents [Unknown]
  - Asthenia [Unknown]
  - Epistaxis [Unknown]
  - Rhinitis [Unknown]
  - Neurotoxicity [Unknown]
